FAERS Safety Report 7693574 (Version 2)
Quarter: 2019Q2

REPORT INFORMATION
  Report Type: Spontaneous
  Country: IT (occurrence: IT)
  Receive Date: 20101006
  Receipt Date: 20190506
  Transmission Date: 20190711
  Serious: Yes (Hospitalization, Other)
  Sender: FDA-Public Use
  Company Number: GB-ACCORD-003918

PATIENT
  Age: 48 Year
  Sex: Male

DRUGS (2)
  1. TADALAFIL. [Interacting]
     Active Substance: TADALAFIL
     Indication: PRODUCT USED FOR UNKNOWN INDICATION
  2. SIMVASTATIN. [Suspect]
     Active Substance: SIMVASTATIN
     Indication: PRODUCT USED FOR UNKNOWN INDICATION
     Dosage: 20 MG, 1X/DAY
     Route: 048

REACTIONS (2)
  - Drug interaction [Unknown]
  - Myopathy [Recovered/Resolved]
